FAERS Safety Report 25490758 (Version 1)
Quarter: 2025Q2

REPORT INFORMATION
  Report Type: Spontaneous
  Country: PL (occurrence: PL)
  Receive Date: 20250628
  Receipt Date: 20250628
  Transmission Date: 20250716
  Serious: Yes (Other)
  Sender: AUROBINDO
  Company Number: PL-002147023-NVSC2023PL042209

PATIENT
  Age: 52 Year
  Sex: Male

DRUGS (30)
  1. CYCLOSPORINE [Suspect]
     Active Substance: CYCLOSPORINE
     Indication: Allogenic stem cell transplantation
     Route: 065
     Dates: start: 20210404, end: 20211124
  2. CYCLOSPORINE [Suspect]
     Active Substance: CYCLOSPORINE
     Indication: Immunosuppressant drug therapy
     Route: 065
     Dates: start: 20211124
  3. CYCLOSPORINE [Suspect]
     Active Substance: CYCLOSPORINE
     Indication: Acute graft versus host disease
     Route: 065
  4. CYCLOSPORINE [Suspect]
     Active Substance: CYCLOSPORINE
     Route: 065
  5. MYCOPHENOLATE MOFETIL [Suspect]
     Active Substance: MYCOPHENOLATE MOFETIL
     Indication: Acute graft versus host disease
     Route: 065
     Dates: start: 20210524, end: 20210620
  6. MYCOPHENOLATE MOFETIL [Suspect]
     Active Substance: MYCOPHENOLATE MOFETIL
     Route: 065
     Dates: start: 20210811
  7. BUSULFAN [Suspect]
     Active Substance: BUSULFAN
     Indication: Prophylaxis against transplant rejection
     Route: 065
  8. FLUDARABINE [Suspect]
     Active Substance: FLUDARABINE PHOSPHATE
     Indication: Prophylaxis against transplant rejection
     Route: 065
  9. METHOTREXATE [Suspect]
     Active Substance: METHOTREXATE
     Indication: Immunosuppressant drug therapy
     Route: 065
  10. METHOTREXATE [Suspect]
     Active Substance: METHOTREXATE
     Indication: Allogenic stem cell transplantation
  11. PREDNISONE [Suspect]
     Active Substance: PREDNISONE
     Indication: Acute graft versus host disease
     Route: 065
     Dates: start: 20221130
  12. PREDNISONE [Suspect]
     Active Substance: PREDNISONE
     Route: 065
     Dates: start: 20220627
  13. PREDNISONE [Suspect]
     Active Substance: PREDNISONE
     Route: 065
     Dates: start: 20220302
  14. PREDNISONE [Suspect]
     Active Substance: PREDNISONE
     Route: 065
     Dates: start: 20221109
  15. PREDNISONE [Suspect]
     Active Substance: PREDNISONE
     Route: 065
     Dates: start: 20210507
  16. PREDNISONE [Suspect]
     Active Substance: PREDNISONE
     Route: 065
     Dates: start: 20210702
  17. PREDNISONE [Suspect]
     Active Substance: PREDNISONE
     Route: 065
     Dates: start: 20210609
  18. PREDNISONE [Suspect]
     Active Substance: PREDNISONE
     Route: 065
     Dates: start: 20220324
  19. PREDNISONE [Suspect]
     Active Substance: PREDNISONE
     Route: 065
     Dates: start: 20220906
  20. PREDNISONE [Suspect]
     Active Substance: PREDNISONE
     Route: 065
     Dates: start: 20210702
  21. PREDNISONE [Suspect]
     Active Substance: PREDNISONE
     Route: 065
     Dates: start: 20220411
  22. THYMOGLOBULIN [Suspect]
     Active Substance: LAPINE T-LYMPHOCYTE IMMUNE GLOBULIN
     Indication: Allogenic stem cell transplantation
     Route: 065
  23. THYMOGLOBULIN [Suspect]
     Active Substance: LAPINE T-LYMPHOCYTE IMMUNE GLOBULIN
     Indication: Immunosuppressant drug therapy
  24. THYMOGLOBULIN [Suspect]
     Active Substance: LAPINE T-LYMPHOCYTE IMMUNE GLOBULIN
     Indication: Prophylaxis against transplant rejection
  25. METFORMIN [Concomitant]
     Active Substance: METFORMIN HYDROCHLORIDE
     Indication: Diabetes mellitus
     Route: 065
  26. RUXOLITINIB [Concomitant]
     Active Substance: RUXOLITINIB
     Indication: Chronic graft versus host disease
     Route: 065
     Dates: start: 20221130
  27. RUXOLITINIB [Concomitant]
     Active Substance: RUXOLITINIB
     Route: 065
     Dates: start: 20220119
  28. RUXOLITINIB [Concomitant]
     Active Substance: RUXOLITINIB
     Route: 065
     Dates: start: 20211231
  29. RUXOLITINIB [Concomitant]
     Active Substance: RUXOLITINIB
     Route: 065
     Dates: start: 20211125
  30. RUXOLITINIB [Concomitant]
     Active Substance: RUXOLITINIB
     Route: 065
     Dates: start: 20210113

REACTIONS (6)
  - Cytomegalovirus infection reactivation [Unknown]
  - Acute graft versus host disease [Unknown]
  - Skin lesion [Unknown]
  - Gastrointestinal inflammation [Unknown]
  - BK virus infection [Unknown]
  - Product use in unapproved indication [Unknown]
